FAERS Safety Report 19233428 (Version 1)
Quarter: 2021Q2

REPORT INFORMATION
  Report Type: Report from Study
  Country: JP (occurrence: JP)
  Receive Date: 20210507
  Receipt Date: 20210507
  Transmission Date: 20210717
  Serious: Yes (Life-Threatening, Hospitalization)
  Sender: FDA-Public Use
  Company Number: JP-ANIPHARMA-2021-JP-000194

PATIENT
  Age: 73 Year
  Sex: Female
  Weight: 49 kg

DRUGS (8)
  1. RESTAMIN [Concomitant]
     Active Substance: DIPHENHYDRAMINE
     Route: 065
     Dates: start: 20190418
  2. BERIZYM [Concomitant]
     Active Substance: CELLULASE\DIASTASE\LIPASE
     Route: 065
     Dates: start: 20190218
  3. UNISIA [Concomitant]
     Active Substance: AMLODIPINE BESYLATE\CANDESARTAN CILEXETIL
     Route: 065
     Dates: start: 20181114
  4. CLARITIN [Concomitant]
     Active Substance: LORATADINE
     Route: 065
     Dates: start: 20190320
  5. HIRUDOID [Concomitant]
     Active Substance: GLYCOSAMINOGLYCANS
     Route: 065
     Dates: start: 2013
  6. ANASTROZOLE. [Suspect]
     Active Substance: ANASTROZOLE
     Indication: INVASIVE DUCTAL BREAST CARCINOMA
     Dosage: 1 MG DAILY / 1 MG DAILY
     Route: 048
     Dates: start: 20190205
  7. LOPEMIN [Concomitant]
     Route: 065
     Dates: start: 20110208
  8. POLARAMINE [Concomitant]
     Active Substance: DEXCHLORPHENIRAMINE MALEATE
     Route: 065
     Dates: start: 20190320

REACTIONS (1)
  - Immune thrombocytopenia [Recovering/Resolving]

NARRATIVE: CASE EVENT DATE: 20201203
